FAERS Safety Report 9913793 (Version 2)
Quarter: 2014Q1

REPORT INFORMATION
  Report Type: Spontaneous
  Country: US (occurrence: None)
  Receive Date: 20140218
  Receipt Date: 20140311
  Transmission Date: 20141002
  Serious: Yes (Other)
  Sender: FDA-Public Use
  Company Number: 2014P1000698

PATIENT
  Age: 18 Year
  Sex: Male
  Weight: 72.58 kg

DRUGS (4)
  1. MYORISAN [Suspect]
     Indication: ACNE
     Route: 048
     Dates: start: 20130703, end: 20130806
  2. ZENATANE [Suspect]
     Indication: ACNE
     Dates: start: 20130807, end: 20130909
  3. CUTIVATE CREAM [Concomitant]
  4. MELATONIN [Concomitant]

REACTIONS (14)
  - Mood swings [None]
  - Xerosis [None]
  - Lip dry [None]
  - Dry skin [None]
  - Skin exfoliation [None]
  - Cheilitis [None]
  - Epistaxis [None]
  - Blood triglycerides decreased [None]
  - Blood triglycerides increased [None]
  - Alanine aminotransferase increased [None]
  - Aspartate aminotransferase increased [None]
  - Abdominal pain upper [None]
  - Dry eye [None]
  - Insomnia [None]
